FAERS Safety Report 9085272 (Version 1)
Quarter: 2013Q1

REPORT INFORMATION
  Report Type: Report from Study
  Country: US (occurrence: US)
  Receive Date: 20130130
  Receipt Date: 20130130
  Transmission Date: 20140127
  Serious: No
  Sender: FDA-Public Use
  Company Number: US-ABBOTT-12P-163-0988531-00

PATIENT
  Sex: Male
  Weight: 88.53 kg

DRUGS (3)
  1. HUMIRA [Suspect]
     Indication: RHEUMATOID ARTHRITIS
     Route: 058
     Dates: start: 201109, end: 201111
  2. HUMIRA [Suspect]
     Route: 058
     Dates: start: 201111, end: 201207
  3. HUMIRA [Suspect]
     Route: 058
     Dates: start: 201209

REACTIONS (1)
  - Drug ineffective [Recovered/Resolved]
